FAERS Safety Report 25447791 (Version 2)
Quarter: 2025Q3

REPORT INFORMATION
  Report Type: Report from Study
  Country: KR (occurrence: KR)
  Receive Date: 20250617
  Receipt Date: 20250714
  Transmission Date: 20251021
  Serious: Yes (Other)
  Sender: NOVARTIS
  Company Number: KR-002147023-NVSC2022KR182848

PATIENT
  Age: 69 Year
  Sex: Female
  Weight: 58.3 kg

DRUGS (14)
  1. KISQALI [Suspect]
     Active Substance: RIBOCICLIB SUCCINATE
     Indication: Hormone receptor positive HER2 negative breast cancer
     Dosage: 600 MG, QD
     Route: 048
     Dates: start: 20211228, end: 20220117
  2. KISQALI [Suspect]
     Active Substance: RIBOCICLIB SUCCINATE
     Dosage: 600 MG, QD
     Route: 048
     Dates: start: 20220125, end: 20220214
  3. KISQALI [Suspect]
     Active Substance: RIBOCICLIB SUCCINATE
     Dosage: 600 MG, QD
     Route: 048
     Dates: start: 20220224, end: 20220316
  4. KISQALI [Suspect]
     Active Substance: RIBOCICLIB SUCCINATE
     Dosage: 600 MG, QD
     Route: 048
     Dates: start: 20220324, end: 20220413
  5. KISQALI [Suspect]
     Active Substance: RIBOCICLIB SUCCINATE
     Dosage: 600 MG, QD
     Route: 048
     Dates: start: 20220421, end: 20220511
  6. KISQALI [Suspect]
     Active Substance: RIBOCICLIB SUCCINATE
     Dosage: 600 MG, QD
     Route: 048
     Dates: start: 20220519, end: 20220608
  7. KISQALI [Suspect]
     Active Substance: RIBOCICLIB SUCCINATE
     Dosage: 600 MG, QD
     Route: 048
     Dates: start: 20220616, end: 20220706
  8. Aronamin C Plus [Concomitant]
     Indication: Prophylaxis
     Dosage: 2 DOSAGE FORM, QD
     Route: 048
     Dates: start: 20220224
  9. Bretra [Concomitant]
     Indication: Breast cancer
     Dosage: 2.5 MG, QD
     Route: 048
     Dates: start: 20211228
  10. CELEBREX [Concomitant]
     Active Substance: CELECOXIB
     Indication: Prophylaxis
     Dosage: 200 MG, QD
     Route: 048
     Dates: start: 20220519
  11. Cretor [Concomitant]
     Indication: Prophylaxis
     Dosage: 1 DOSAGE FORM, QD (1 TAB/DAY)
     Route: 048
     Dates: start: 20201222
  12. D3 base [Concomitant]
     Indication: Prophylaxis
     Dosage: 1 DOSAGE FORM, QD 1AMPLE/DAY
     Route: 030
     Dates: start: 20220224, end: 20220224
  13. LEVOTHYROXINE SODIUM [Concomitant]
     Active Substance: LEVOTHYROXINE SODIUM
     Indication: Thyroid cancer
     Dosage: 1 DOSAGE FORM, QD
     Route: 048
     Dates: start: 20120821
  14. MESIMA [Concomitant]
     Active Substance: PHELLINUS LINTEUS MYCELIUM
     Indication: Prophylaxis
     Dosage: 3 DOSAGE FORM, QD
     Route: 048
     Dates: start: 20220224

REACTIONS (3)
  - Neutropenia [Recovered/Resolved with Sequelae]
  - Eye oedema [Not Recovered/Not Resolved]
  - Rash [Not Recovered/Not Resolved]

NARRATIVE: CASE EVENT DATE: 20220125
